FAERS Safety Report 14760187 (Version 1)
Quarter: 2018Q2

REPORT INFORMATION
  Report Type: Spontaneous
  Country: US (occurrence: US)
  Receive Date: 20180413
  Receipt Date: 20180413
  Transmission Date: 20180711
  Serious: No
  Sender: FDA-Public Use
  Company Number: US-B.I. PHARMACEUTICALS,INC./RIDGEFIELD-2018-BI-019454

PATIENT
  Sex: Female

DRUGS (2)
  1. GILOTRIF [Suspect]
     Active Substance: AFATINIB
     Indication: LUNG NEOPLASM MALIGNANT
     Dosage: DAILY;  FORM STRENGTH: 40 MG; ACTION(S) TAKEN WITH PRODUCT: DRUG REDUCED
     Route: 048
  2. GILOTRIF [Suspect]
     Active Substance: AFATINIB
     Dosage: DAILY;  FORM STRENGTH: 30 MG; ACTION(S) TAKEN WITH PRODUCT: DRUG WITHDRAWN
     Route: 048
     Dates: end: 20180409

REACTIONS (2)
  - Drug level above therapeutic [Unknown]
  - Drug ineffective [Unknown]
